FAERS Safety Report 5060611-X (Version None)
Quarter: 2006Q2

REPORT INFORMATION
  Report Type: 
  Country: None (occurrence: None)
  Receive Date: 20060630
  Receipt Date: 20051229
  Transmission Date: 20061013
  Serious: Yes (Other)
  Sender: FDA-Public Use
  Company Number: US200512004480

PATIENT
  Age: 29 Year
  Sex: Male

DRUGS (6)
  1. HUMULIN R [Suspect]
     Indication: DIABETES MELLITUS
     Dates: start: 19950101
  2. HUMULIN N [Suspect]
     Indication: DIABETES MELLITUS
     Dates: start: 19950101
  3. HUMALOG [Suspect]
     Indication: DIABETES MELLITUS
  4. INSULIN [Suspect]
     Indication: DIABETES MELLITUS
     Dosage: 2/D
     Dates: start: 19950101
  5. INSULIN [Suspect]
     Indication: DIABETES MELLITUS
     Dates: start: 19950101
  6. NOVOLIN N [Concomitant]

REACTIONS (4)
  - BLOOD GLUCOSE DECREASED [None]
  - BLOOD GLUCOSE INCREASED [None]
  - LOSS OF CONSCIOUSNESS [None]
  - RASH [None]
